FAERS Safety Report 22187294 (Version 1)
Quarter: 2023Q2

REPORT INFORMATION
  Report Type: Spontaneous
  Country: CA (occurrence: CA)
  Receive Date: 20230407
  Receipt Date: 20230407
  Transmission Date: 20230721
  Serious: Yes (Disabling)
  Sender: FDA-Public Use
  Company Number: CA-BAUSCH-BL-2023-005683

PATIENT
  Age: 56 Year
  Sex: Male
  Weight: 63 kg

DRUGS (6)
  1. METFORMIN [Interacting]
     Active Substance: METFORMIN HYDROCHLORIDE
     Indication: Diabetes mellitus
     Route: 048
  2. METFORMIN [Interacting]
     Active Substance: METFORMIN HYDROCHLORIDE
     Route: 048
  3. VOSEVI [Interacting]
     Active Substance: SOFOSBUVIR\VELPATASVIR\VOXILAPREVIR
     Indication: Hepatitis C
     Route: 048
  4. AMITRIPTYLINE [Concomitant]
     Active Substance: AMITRIPTYLINE
     Indication: Migraine
     Route: 048
  5. PROPRANOLOL [Concomitant]
     Active Substance: PROPRANOLOL HYDROCHLORIDE
     Indication: Hypertension
     Route: 048
  6. SEMAGLUTIDE [Concomitant]
     Active Substance: SEMAGLUTIDE
     Indication: Diabetes mellitus
     Route: 058

REACTIONS (2)
  - Drug interaction [Recovered/Resolved]
  - Diarrhoea [Recovered/Resolved]
